FAERS Safety Report 22904963 (Version 2)
Quarter: 2023Q4

REPORT INFORMATION
  Report Type: Report from Study
  Country: CA (occurrence: CA)
  Receive Date: 20230905
  Receipt Date: 20231023
  Transmission Date: 20240110
  Serious: Yes (Hospitalization, Other)
  Sender: FDA-Public Use
  Company Number: CA-ABBVIE-5393213

PATIENT
  Sex: Female

DRUGS (3)
  1. SKYRIZI [Suspect]
     Active Substance: RISANKIZUMAB-RZAA
     Indication: Psoriasis
     Route: 058
     Dates: start: 20210924, end: 202306
  2. SKYRIZI [Suspect]
     Active Substance: RISANKIZUMAB-RZAA
     Route: 058
  3. SKYRIZI [Suspect]
     Active Substance: RISANKIZUMAB-RZAA
     Route: 058
     Dates: start: 20230825

REACTIONS (7)
  - Abortion [Unknown]
  - Maternal exposure during pregnancy [Unknown]
  - Psoriasis [Unknown]
  - Bronchitis [Recovering/Resolving]
  - Atypical pneumonia [Recovering/Resolving]
  - Abdominal pain [Recovering/Resolving]
  - Bacterial vaginosis [Recovering/Resolving]

NARRATIVE: CASE EVENT DATE: 20230101
